FAERS Safety Report 14134941 (Version 2)
Quarter: 2017Q4

REPORT INFORMATION
  Report Type: Report from Study
  Country: CN (occurrence: CN)
  Receive Date: 20171027
  Receipt Date: 20171117
  Transmission Date: 20180321
  Serious: Yes (Hospitalization, Other)
  Sender: FDA-Public Use
  Company Number: CN-BAYER-2017-199694

PATIENT
  Sex: Male

DRUGS (1)
  1. STIVARGA [Suspect]
     Active Substance: REGORAFENIB
     Indication: GASTROINTESTINAL STROMAL CANCER
     Dosage: 160 MG, QD
     Route: 048
     Dates: start: 20170928, end: 20171020

REACTIONS (7)
  - Ureteral disorder [Recovering/Resolving]
  - Pain [Recovering/Resolving]
  - Gastrointestinal stromal cancer [None]
  - Nerve compression [None]
  - Constipation [Recovering/Resolving]
  - Oedematous kidney [Recovering/Resolving]
  - Hypoaesthesia [Unknown]

NARRATIVE: CASE EVENT DATE: 2017
